FAERS Safety Report 17734057 (Version 1)
Quarter: 2020Q2

REPORT INFORMATION
  Report Type: Spontaneous
  Country: US (occurrence: US)
  Receive Date: 20200430
  Receipt Date: 20200430
  Transmission Date: 20200714
  Serious: Yes (Hospitalization)
  Sender: FDA-Public Use
  Company Number: None

PATIENT
  Age: 61 Year
  Sex: Male

DRUGS (11)
  1. SODIUM CHLORIDE. [Concomitant]
     Active Substance: SODIUM CHLORIDE
  2. TRIUMEQ [Suspect]
     Active Substance: ABACAVIR SULFATE\DOLUTEGRAVIR SODIUM\LAMIVUDINE
     Indication: HIV TEST
     Route: 048
     Dates: start: 20190126
  3. PREZCOBIX [Suspect]
     Active Substance: COBICISTAT\DARUNAVIR ETHANOLATE
     Indication: HIV TEST
     Route: 048
     Dates: start: 20190126
  4. KEPPRA [Concomitant]
     Active Substance: LEVETIRACETAM
  5. LORATADINE. [Concomitant]
     Active Substance: LORATADINE
  6. ACYCLOVIR. [Concomitant]
     Active Substance: ACYCLOVIR
  7. FAMOTIDINE. [Concomitant]
     Active Substance: FAMOTIDINE
  8. FLUTICASON PROPIONATE [Concomitant]
     Active Substance: FLUTICASONE PROPIONATE
  9. MULTIVITAMIN ADULTS [Concomitant]
  10. NAPROXEN. [Concomitant]
     Active Substance: NAPROXEN
  11. OYSTER SHELL CALCIUM 500+ [Concomitant]

REACTIONS (1)
  - Cerebrovascular accident [None]

NARRATIVE: CASE EVENT DATE: 20200428
